FAERS Safety Report 7675251-3 (Version None)
Quarter: 2011Q3

REPORT INFORMATION
  Report Type: 
  Country: None (occurrence: None)
  Receive Date: 20110810
  Receipt Date: 20110805
  Transmission Date: 20111222
  Serious: Yes (Other)
  Sender: FDA-Public Use
  Company Number: US-PFIZER INC-2010006245

PATIENT
  Sex: Female

DRUGS (5)
  1. NORVASC [Suspect]
     Indication: FLUID RETENTION
     Dosage: 5 MG, UNK
     Dates: start: 20090101
  2. POTASSIUM [Concomitant]
     Dosage: UNK
  3. LIPITOR [Suspect]
     Dosage: UNK
  4. NORVASC [Suspect]
     Indication: LIMB DISCOMFORT
  5. SYNTHROID [Suspect]
     Dosage: UNK
     Dates: start: 19840101

REACTIONS (10)
  - DEAFNESS [None]
  - ENURESIS [None]
  - GAIT DISTURBANCE [None]
  - DIZZINESS [None]
  - PAIN IN EXTREMITY [None]
  - HEAD INJURY [None]
  - PHARYNGEAL DISORDER [None]
  - CYSTITIS [None]
  - SKIN DISCOLOURATION [None]
  - WEIGHT INCREASED [None]
